FAERS Safety Report 9838375 (Version 1)
Quarter: 2013Q4

REPORT INFORMATION
  Report Type: Spontaneous
  Country: US (occurrence: None)
  Receive Date: 20131205
  Receipt Date: 20131205
  Transmission Date: 20140711
  Serious: Yes (Hospitalization)
  Sender: FDA-Public Use
  Company Number: 163-POMAL-13093396

PATIENT
  Age: 66 Year
  Sex: Male
  Weight: 86.18 kg

DRUGS (9)
  1. POMALYST [Suspect]
     Indication: PLASMA CELL MYELOMA
     Dosage: 4 MG, 1 IN 1 D, PO
     Route: 048
     Dates: start: 201304
  2. DEXAMETHASONE [Suspect]
     Indication: PLASMA CELL MYELOMA
     Dosage: 4 MG, 10 IN 1 WK, PO
     Route: 048
     Dates: start: 20130421
  3. KYPROLIS [Suspect]
     Indication: PLASMA CELL MYELOMA
     Dosage: 10 MG, 1 IN 1 D, UNK
     Dates: start: 20121030, end: 20130313
  4. VELCADE [Suspect]
     Indication: PLASMA CELL MYELOMA
     Dosage: WEEKLY, UNK
     Dates: start: 20100203, end: 20120924
  5. DIOVAN (VALSARTAN) (UNKNOWN) [Concomitant]
  6. LEXAPRO (ESCITALOPRAM OXALATE) (TABLETS) [Concomitant]
  7. ABILIFY (ARIPIPRAZOLE) (TABLETS) [Concomitant]
  8. ZANTAC (RANITIDINE HYDROCHLORIDE) (UNKNOWN) [Concomitant]
  9. ULTRAM (TRAMADOL HYDROCHLORIDE) (UNKNOWN) [Concomitant]

REACTIONS (1)
  - Platelet count decreased [None]
